FAERS Safety Report 12435178 (Version 1)
Quarter: 2016Q2

REPORT INFORMATION
  Report Type: Spontaneous
  Country: US (occurrence: US)
  Receive Date: 20160603
  Receipt Date: 20160603
  Transmission Date: 20160815
  Serious: No
  Sender: FDA-Public Use
  Company Number: US-ROCHE-1676030

PATIENT
  Sex: Female

DRUGS (1)
  1. XELODA [Suspect]
     Active Substance: CAPECITABINE
     Indication: PRODUCT USED FOR UNKNOWN INDICATION
     Dosage: BID ON DAYS 1 TO 14 OF 21
     Route: 048
     Dates: start: 20151030

REACTIONS (3)
  - Skin discolouration [Unknown]
  - Joint swelling [Unknown]
  - Nerve injury [Unknown]
